FAERS Safety Report 8435503-6 (Version None)
Quarter: 2012Q2

REPORT INFORMATION
  Report Type: 
  Country: None (occurrence: None)
  Receive Date: 20120614
  Receipt Date: 20120611
  Transmission Date: 20120825
  Serious: Yes (Hospitalization)
  Sender: FDA-Public Use
  Company Number: FR-PFIZER INC-2012139463

PATIENT
  Age: 20 Year
  Sex: Male

DRUGS (2)
  1. ZYVOX [Suspect]
     Indication: CELLULITIS
     Dosage: UNK
     Dates: start: 20120427, end: 20120502
  2. TAZOBACTAM [Suspect]
     Indication: CELLULITIS
     Dosage: 4 G, 3X/DAY
     Route: 042
     Dates: start: 20120411, end: 20120427

REACTIONS (3)
  - CHOLESTASIS [None]
  - THROMBOCYTOPENIA [None]
  - CYTOLYTIC HEPATITIS [None]
